FAERS Safety Report 21993431 (Version 2)
Quarter: 2023Q2

REPORT INFORMATION
  Report Type: Report from Study
  Country: US (occurrence: US)
  Receive Date: 20230215
  Receipt Date: 20230522
  Transmission Date: 20230722
  Serious: Yes (Death, Other)
  Sender: FDA-Public Use
  Company Number: US-SUN PHARMACEUTICAL INDUSTRIES LTD-2023R1-378448

PATIENT
  Age: 65 Year
  Sex: Female

DRUGS (2)
  1. VERAPAMIL [Suspect]
     Active Substance: VERAPAMIL HYDROCHLORIDE
     Indication: Product used for unknown indication
     Dosage: UNK
     Route: 065
  2. FAT EMULSION NOS [Suspect]
     Active Substance: EGG PHOSPHOLIPIDS\SAFFLOWER OIL\SOYBEAN OIL
     Indication: Product used for unknown indication
     Dosage: UNK
     Route: 065

REACTIONS (11)
  - Toxicity to various agents [Fatal]
  - Metabolic acidosis [Fatal]
  - Hypotension [Fatal]
  - Tachycardia [Fatal]
  - Bradycardia [Fatal]
  - Anion gap [Fatal]
  - Hepatotoxicity [Fatal]
  - Haemolysis [Fatal]
  - Coagulopathy [Fatal]
  - Thrombocytopenia [Fatal]
  - Acute kidney injury [Fatal]
